FAERS Safety Report 10681052 (Version 1)
Quarter: 2014Q4

REPORT INFORMATION
  Report Type: Spontaneous
  Country: DE (occurrence: DE)
  Receive Date: 20141229
  Receipt Date: 20141229
  Transmission Date: 20150529
  Serious: Yes (Hospitalization)
  Sender: FDA-Public Use
  Company Number: DE-MYLANLABS-2014M1015010

PATIENT

DRUGS (1)
  1. CITALOPRAM DURA 20MG FILMTABLETTEN [Suspect]
     Active Substance: CITALOPRAM HYDROBROMIDE
     Indication: DRUG ABUSE
     Dosage: 20 MG, UNK (10 TABLETS ONCE)
     Dates: start: 20141217, end: 20141217

REACTIONS (4)
  - Diarrhoea [Unknown]
  - Vomiting [Unknown]
  - Tremor [Unknown]
  - Drug abuse [Recovered/Resolved]

NARRATIVE: CASE EVENT DATE: 20141217
